FAERS Safety Report 6374432-9 (Version None)
Quarter: 2009Q3

REPORT INFORMATION
  Report Type: 
  Country: None (occurrence: None)
  Receive Date: 20090924
  Receipt Date: 20090914
  Transmission Date: 20100115
  Serious: Yes (Other)
  Sender: FDA-Public Use
  Company Number: KR-PFIZER INC-2009262180

PATIENT

DRUGS (1)
  1. LIPITOR [Suspect]
     Indication: HYPERLIPIDAEMIA
     Dosage: 10 MG, 1X/DAY
     Route: 048
     Dates: start: 20090822, end: 20090825

REACTIONS (3)
  - ANXIETY [None]
  - DIABETES MELLITUS [None]
  - DRY MOUTH [None]
